FAERS Safety Report 5496970-3 (Version None)
Quarter: 2007Q4

REPORT INFORMATION
  Report Type: 
  Country: None (occurrence: None)
  Receive Date: 20071025
  Receipt Date: 20071017
  Transmission Date: 20080405
  Serious: Yes (Other)
  Sender: FDA-Public Use
  Company Number: B0492517A

PATIENT
  Age: 67 Year
  Sex: Male

DRUGS (11)
  1. AMOXICILLIN TRIHYDRATE [Suspect]
     Indication: INFECTION
     Dosage: 6.12G THREE TIMES PER DAY
     Route: 042
     Dates: start: 20060917, end: 20060919
  2. CLAVULANATE POTASSIUM [Suspect]
     Indication: INFECTION
     Dosage: 6.12G THREE TIMES PER DAY
     Route: 042
     Dates: start: 20060917, end: 20060919
  3. TAZOCIN [Suspect]
     Indication: INFECTION
     Dosage: 4.8G THREE TIMES PER DAY
     Route: 042
     Dates: start: 20060918, end: 20060924
  4. ASPIRIN [Concomitant]
     Indication: DRUG USE FOR UNKNOWN INDICATION
     Route: 065
  5. CLARITHROMYCIN [Concomitant]
     Indication: INFECTION
     Dosage: 500MG TWICE PER DAY
     Route: 065
     Dates: start: 20070920, end: 20070922
  6. DIGOXIN [Concomitant]
     Indication: DRUG USE FOR UNKNOWN INDICATION
     Route: 065
  7. RABEPRAZOLE SODIUM [Concomitant]
     Indication: DRUG USE FOR UNKNOWN INDICATION
     Route: 065
  8. QUININE HYDROCHLORIDE [Concomitant]
     Indication: DRUG USE FOR UNKNOWN INDICATION
     Route: 065
  9. RAMIPRIL [Concomitant]
     Indication: DRUG USE FOR UNKNOWN INDICATION
     Route: 065
  10. SPIRIVA [Concomitant]
     Indication: DRUG USE FOR UNKNOWN INDICATION
     Route: 065
  11. SYMBICORT [Concomitant]
     Indication: DRUG USE FOR UNKNOWN INDICATION
     Route: 065

REACTIONS (5)
  - ALANINE AMINOTRANSFERASE INCREASED [None]
  - ASPARTATE AMINOTRANSFERASE INCREASED [None]
  - BLOOD ALKALINE PHOSPHATASE INCREASED [None]
  - GAMMA-GLUTAMYLTRANSFERASE INCREASED [None]
  - HEPATIC ENZYME INCREASED [None]
